FAERS Safety Report 18487048 (Version 2)
Quarter: 2021Q1

REPORT INFORMATION
  Report Type: Spontaneous
  Country: US (occurrence: US)
  Receive Date: 20201110
  Receipt Date: 20210219
  Transmission Date: 20210419
  Serious: Yes (Other)
  Sender: FDA-Public Use
  Company Number: NVSC2020US300617

PATIENT
  Age: 45 Year
  Sex: Male

DRUGS (9)
  1. GRISEOFULVIN. [Suspect]
     Active Substance: GRISEOFULVIN
     Indication: DERMATOPHYTOSIS
     Dosage: UNK
     Route: 048
  2. ITRACONAZOLE. [Concomitant]
     Active Substance: ITRACONAZOLE
     Dosage: 200 MG PRN
     Route: 048
  3. NAFTIFINE. [Suspect]
     Active Substance: NAFTIFINE HYDROCHLORIDE
     Indication: DERMATOPHYTOSIS
     Dosage: UNK
     Route: 061
  4. APIXABAN [Concomitant]
     Active Substance: APIXABAN
     Indication: COAGULOPATHY
     Dosage: UNK
     Route: 065
  5. ITRACONAZOLE. [Concomitant]
     Active Substance: ITRACONAZOLE
     Indication: DERMATOPHYTOSIS
     Dosage: 200 MG, BID
     Route: 048
  6. TERBINAFINE. [Suspect]
     Active Substance: TERBINAFINE
     Indication: DERMATOPHYTOSIS
     Dosage: 250 MG
     Route: 048
  7. CICLOPIROX. [Concomitant]
     Active Substance: CICLOPIROX
     Indication: ONYCHOMYCOSIS
  8. CICLOPIROX. [Concomitant]
     Active Substance: CICLOPIROX
     Indication: BODY TINEA
     Dosage: TWICE DAILY
     Route: 061
  9. ITRACONAZOLE. [Concomitant]
     Active Substance: ITRACONAZOLE
     Dosage: 200 MG, QD
     Route: 048

REACTIONS (3)
  - Drug ineffective [Unknown]
  - Drug resistance [Unknown]
  - Pathogen resistance [Unknown]
